FAERS Safety Report 22033839 (Version 1)
Quarter: 2023Q1

REPORT INFORMATION
  Report Type: Spontaneous
  Country: US (occurrence: US)
  Receive Date: 20230224
  Receipt Date: 20230224
  Transmission Date: 20230417
  Serious: No
  Sender: FDA-Public Use
  Company Number: US-GSKCCFUS-Case-01630920_AE-92045

PATIENT
  Sex: Female

DRUGS (1)
  1. BREO ELLIPTA [Suspect]
     Active Substance: FLUTICASONE FUROATE\VILANTEROL TRIFENATATE
     Indication: Lung neoplasm malignant
     Dosage: 1 PUFF(S), QD, 200/25MCG
     Route: 055

REACTIONS (5)
  - Wrong technique in device usage process [Unknown]
  - Therapeutic response unexpected [Unknown]
  - Off label use [Unknown]
  - Extra dose administered [Unknown]
  - Product use in unapproved indication [Unknown]
